FAERS Safety Report 18445385 (Version 2)
Quarter: 2020Q4

REPORT INFORMATION
  Report Type: Spontaneous
  Country: CL (occurrence: CL)
  Receive Date: 20201030
  Receipt Date: 20201112
  Transmission Date: 20210114
  Serious: No
  Sender: FDA-Public Use
  Company Number: CL-TEVA-2020-CL-1842448

PATIENT
  Age: 36 Year
  Sex: Female

DRUGS (1)
  1. SENTIS (PHENTERMINE) [Suspect]
     Active Substance: PHENTERMINE
     Indication: OBESITY
     Route: 065

REACTIONS (3)
  - Suspected counterfeit product [Unknown]
  - Drug effect less than expected [Unknown]
  - COVID-19 [Recovered/Resolved]

NARRATIVE: CASE EVENT DATE: 2020
